FAERS Safety Report 9710500 (Version 1)
Quarter: 2013Q4

REPORT INFORMATION
  Report Type: Spontaneous
  Country: US (occurrence: US)
  Receive Date: 20131126
  Receipt Date: 20131126
  Transmission Date: 20140711
  Serious: No
  Sender: FDA-Public Use
  Company Number: US-BRISTOL-MYERS SQUIBB COMPANY-18834259

PATIENT
  Age: 48 Year
  Sex: Female

DRUGS (7)
  1. BYETTA [Suspect]
     Dosage: DOSE VALUE:200MG/DL AND 25 MG/DL
     Dates: start: 2009
  2. METFORMIN HCL [Concomitant]
  3. GLYBURIDE [Concomitant]
     Dosage: 1DF:GLYBURIDE 1.25 (2 TABS)
  4. LEVOTHYROXINE [Concomitant]
  5. LISINOPRIL + HCTZ [Concomitant]
     Dosage: 1DF:20/25 UNIT NOS
  6. MICROGESTIN FE [Concomitant]
  7. PRILOSEC [Concomitant]

REACTIONS (1)
  - Hypersensitivity [Recovered/Resolved]
